FAERS Safety Report 7688870-5 (Version None)
Quarter: 2011Q3

REPORT INFORMATION
  Report Type: 
  Country: None (occurrence: None)
  Receive Date: 20110817
  Receipt Date: 20110805
  Transmission Date: 20111222
  Serious: Yes (Hospitalization)
  Sender: FDA-Public Use
  Company Number: PHHY2011JP72138

PATIENT
  Sex: Female

DRUGS (10)
  1. MAGNESIUM OXIDE [Concomitant]
     Indication: CONSTIPATION
     Dosage: 03 G, UNK
     Route: 048
     Dates: start: 20110323
  2. VITAMEDIN CAPSULE [Concomitant]
     Dosage: UNK UKN, UNK
  3. XELODA [Suspect]
     Dosage: 1800 MG, UNK
     Route: 048
     Dates: start: 20110608
  4. AZUNOL [Concomitant]
     Dosage: UNK UKN, UNK
  5. PROCHLORPERAZINE [Concomitant]
     Indication: PROPHYLAXIS OF NAUSEA AND VOMITING
     Dosage: 15 MG, UNK
     Route: 048
     Dates: start: 20110323, end: 20110531
  6. OXINORM [Concomitant]
     Indication: CANCER PAIN
     Dosage: UNK UKN, UNK
     Route: 048
     Dates: start: 20110323
  7. OXYCONTIN [Concomitant]
     Indication: CANCER PAIN
     Dosage: 10 MG, UNK
     Route: 048
     Dates: start: 20110316
  8. FEMARA [Suspect]
     Indication: BREAST CANCER
     Dosage: 2.5 MG, UNK
     Route: 048
     Dates: start: 20110323
  9. MOBIC [Concomitant]
     Indication: CANCER PAIN
     Dosage: 10 MG, UNK
     Route: 048
     Dates: start: 20110323
  10. XELODA [Suspect]
     Indication: BREAST CANCER
     Dosage: 3000 MG, UNK
     Route: 048
     Dates: start: 20110307, end: 20110404

REACTIONS (5)
  - DIARRHOEA [None]
  - DEHYDRATION [None]
  - CHEILITIS [None]
  - BLOOD PRESSURE DECREASED [None]
  - HYPOPHAGIA [None]
